FAERS Safety Report 4997381-7 (Version None)
Quarter: 2006Q1

REPORT INFORMATION
  Report Type: 
  Country: None (occurrence: None)
  Receive Date: 20060315
  Receipt Date: 20051130
  Transmission Date: 20060701
  Serious: Yes (Other)
  Sender: FDA-Public Use
  Company Number: 427144

PATIENT
  Sex: Female

DRUGS (2)
  1. BONIVA [Suspect]
     Dosage: ORAL
     Route: 048
     Dates: start: 20051101
  2. DAYQUIL (DEXTROMETHORPHAN HYDROBROMIDE/GUAIFENESIN/PARACETAMOL/PSEUDOE [Concomitant]

REACTIONS (5)
  - BURNING SENSATION [None]
  - ERYTHEMA [None]
  - NASOPHARYNGITIS [None]
  - RASH [None]
  - URTICARIA [None]
